FAERS Safety Report 6190066-3 (Version None)
Quarter: 2009Q2

REPORT INFORMATION
  Report Type: 
  Country: None (occurrence: None)
  Receive Date: 20090512
  Receipt Date: 20090512
  Transmission Date: 20091009
  Serious: Yes (Hospitalization)
  Sender: FDA-Public Use
  Company Number: None

PATIENT
  Age: 46 Year
  Sex: Male
  Weight: 130.6359 kg

DRUGS (1)
  1. BYETTA [Suspect]
     Indication: DIABETES MELLITUS
     Dosage: 5-10 MG TWICE DAILY SQ
     Route: 058
     Dates: start: 20080401, end: 20081101

REACTIONS (2)
  - PANCREATITIS [None]
  - PSEUDOCYST [None]
